FAERS Safety Report 10109831 (Version 2)
Quarter: 2014Q3

REPORT INFORMATION
  Report Type: Spontaneous
  Country: GB (occurrence: None)
  Receive Date: 20140423
  Receipt Date: 20140811
  Transmission Date: 20150326
  Serious: Yes (Death, Hospitalization, Other)
  Sender: FDA-Public Use
  Company Number: AUR-APL-2014-04731

PATIENT
  Age: 78 Year
  Sex: Male

DRUGS (2)
  1. ENALAPRIL MALEATE TABLETS 2.5MG(ENALAPRIL) TABLET, 2.5MG [Suspect]
     Active Substance: ENALAPRIL MALEATE
     Indication: CARDIAC FAILURE CHRONIC
     Route: 048
     Dates: start: 20100615, end: 20120618
  2. BISOPROLOL FUMARATE FILM-COATED TABLETS 3.75MG (BISOPROLOL) FILM-COATED TABLET, 3.75MG? [Suspect]
     Active Substance: BISOPROLOL FUMARATE
     Indication: CARDIAC FAILURE
     Dosage: 3.75 MG, ONCE A DAY, ORAL
     Route: 048
     Dates: start: 20110908, end: 20120715

REACTIONS (31)
  - Neutrophilia [None]
  - Decreased appetite [None]
  - Pyrexia [None]
  - Inflammation [None]
  - Weight decreased [None]
  - Dyspnoea [None]
  - Confusional state [None]
  - Aspergillus infection [None]
  - Concomitant disease progression [None]
  - Fall [None]
  - Infective exacerbation of bronchiectasis [None]
  - Interstitial lung disease [None]
  - Pseudomonas test positive [None]
  - Chest discomfort [None]
  - Malaise [None]
  - Herpes zoster [None]
  - Cardiac failure [None]
  - Respiratory tract infection [None]
  - Pulmonary oedema [None]
  - Bacterial test positive [None]
  - Lung consolidation [None]
  - Cardiomegaly [None]
  - Gait disturbance [None]
  - Fatigue [None]
  - Malnutrition [None]
  - No therapeutic response [None]
  - Haemoglobin decreased [None]
  - Disease progression [None]
  - Ventricular hypokinesia [None]
  - Depressed mood [None]
  - Rash [None]

NARRATIVE: CASE EVENT DATE: 20120612
